FAERS Safety Report 4399039-4 (Version None)
Quarter: 2004Q3

REPORT INFORMATION
  Report Type: 
  Country: None (occurrence: None)
  Receive Date: 20040712
  Receipt Date: 20040618
  Transmission Date: 20050211
  Serious: Yes (Hospitalization, Other)
  Sender: FDA-Public Use
  Company Number: USA030845189

PATIENT
  Age: 85 Year
  Sex: Female
  Weight: 46 kg

DRUGS (10)
  1. FORTEO [Suspect]
     Indication: OSTEOPOROSIS
     Dosage: 20 UG DAY
     Dates: start: 20030618
  2. REMERON [Concomitant]
  3. ASPIRIN [Concomitant]
  4. NEXIUM [Concomitant]
  5. ARICEPT [Concomitant]
  6. VIOXX [Concomitant]
  7. TOPROL-XL [Concomitant]
  8. LOTREL [Concomitant]
  9. CALCIUM [Concomitant]
  10. IRON [Concomitant]

REACTIONS (7)
  - DIVERTICULITIS [None]
  - FALL [None]
  - HEADACHE [None]
  - MEMORY IMPAIRMENT [None]
  - OEDEMA PERIPHERAL [None]
  - PHARMACEUTICAL PRODUCT COMPLAINT [None]
  - RIB FRACTURE [None]
